FAERS Safety Report 5995029-6 (Version None)
Quarter: 2008Q4

REPORT INFORMATION
  Report Type: 
  Country: None (occurrence: None)
  Receive Date: 20081212
  Receipt Date: 20080923
  Transmission Date: 20090506
  Serious: No
  Sender: FDA-Public Use
  Company Number: US-ABBOTT-08P-163-0477490-00

PATIENT
  Sex: Male
  Weight: 88.53 kg

DRUGS (7)
  1. HUMIRA [Suspect]
     Indication: CROHN'S DISEASE
     Dates: start: 20080822, end: 20080822
  2. HUMIRA [Suspect]
     Route: 058
     Dates: start: 20080905, end: 20080905
  3. HUMIRA [Suspect]
     Route: 058
     Dates: start: 20080919
  4. MESALAMINE [Concomitant]
     Indication: CROHN'S DISEASE
     Route: 048
     Dates: start: 20030101
  5. LAMOTRIGINE [Concomitant]
     Indication: DEPRESSION
     Route: 048
     Dates: start: 20071101
  6. ACETYLSALICYLIC ACID SRT [Concomitant]
     Indication: PROPHYLAXIS
     Route: 048
  7. PREDNISONE TAB [Concomitant]
     Indication: CROHN'S DISEASE
     Dosage: STARTED AT 20MG DAILY+DECREASED EACH WK
     Route: 048
     Dates: start: 20080819, end: 20080915

REACTIONS (5)
  - FATIGUE [None]
  - INITIAL INSOMNIA [None]
  - INSOMNIA [None]
  - SOMNOLENCE [None]
  - TERMINAL INSOMNIA [None]
